FAERS Safety Report 24726848 (Version 1)
Quarter: 2024Q4

REPORT INFORMATION
  Report Type: Spontaneous
  Country: IN (occurrence: IN)
  Receive Date: 20241212
  Receipt Date: 20241212
  Transmission Date: 20250115
  Serious: Yes (Death, Hospitalization, Other)
  Sender: PFIZER
  Company Number: IN-PFIZER INC-PV202300111209

PATIENT
  Age: 20 Year
  Sex: Female
  Weight: 96.4 kg

DRUGS (10)
  1. INOTUZUMAB OZOGAMICIN [Suspect]
     Active Substance: INOTUZUMAB OZOGAMICIN
     Indication: B-cell type acute leukaemia
     Dosage: 1 MG
     Route: 042
     Dates: start: 20230522, end: 2023
  2. INOTUZUMAB OZOGAMICIN [Suspect]
     Active Substance: INOTUZUMAB OZOGAMICIN
     Dosage: 1 MG
     Route: 042
  3. INOTUZUMAB OZOGAMICIN [Suspect]
     Active Substance: INOTUZUMAB OZOGAMICIN
     Dosage: 1 MG
     Route: 042
     Dates: start: 20230610
  4. INOTUZUMAB OZOGAMICIN [Suspect]
     Active Substance: INOTUZUMAB OZOGAMICIN
     Dosage: 1 MG, WEEKLY
     Route: 042
     Dates: start: 20240119
  5. INOTUZUMAB OZOGAMICIN [Suspect]
     Active Substance: INOTUZUMAB OZOGAMICIN
     Dosage: 1MG IN 50ML, NS OVER 1 HOUR (VIA INFUSION / SYRINGE PUMP)
     Route: 042
     Dates: start: 20240502
  6. PHENIRAMINE MALEATE [Concomitant]
     Active Substance: PHENIRAMINE MALEATE
     Dosage: 1ML PER INJ INOTUZUMAB
     Route: 042
  7. CORTEMA [HYDROCORTISONE] [Concomitant]
     Dosage: 100 MG PER INJ INOTUZUMAB
     Route: 042
  8. B-29 GOLD AQ [Concomitant]
     Dosage: 1500 UG ON MONDAY AND THURSDAY
     Route: 058
  9. NEUKINE [Concomitant]
     Dosage: 300 UG DAY 1/2
     Route: 058
  10. CELHEP [Concomitant]
     Dosage: 5000 IU

REACTIONS (7)
  - Death [Fatal]
  - Haemoglobin decreased [Unknown]
  - White blood cell count decreased [Unknown]
  - Platelet count decreased [Unknown]
  - Febrile neutropenia [Unknown]
  - Neutrophil percentage decreased [Unknown]
  - Blood pressure increased [Unknown]

NARRATIVE: CASE EVENT DATE: 20230101
